FAERS Safety Report 9197912 (Version 2)
Quarter: 2013Q2

REPORT INFORMATION
  Report Type: Report from Study
  Country: DE (occurrence: DE)
  Receive Date: 20130328
  Receipt Date: 20130502
  Transmission Date: 20140414
  Serious: Yes (Hospitalization)
  Sender: FDA-Public Use
  Company Number: DE-UCBSA-081487

PATIENT
  Age: 20 Year
  Sex: Female

DRUGS (5)
  1. VIMPAT [Suspect]
     Indication: EPILEPSY
     Dosage: 50 MG DAILY
     Dates: start: 20091114
  2. VIMPAT [Suspect]
     Indication: EPILEPSY
     Dosage: 400MG/DAY
     Dates: end: 20101220
  3. TOPIRAMATE [Concomitant]
     Indication: EPILEPSY
     Dosage: 400MG/DAY
     Dates: end: 2010
  4. OXCARBAZEPINE [Concomitant]
     Indication: EPILEPSY
     Dosage: 2400MG/DAY
     Dates: end: 2010
  5. OXCARBAZEPINE [Concomitant]
     Indication: EPILEPSY
     Dosage: 2100MG/DAY
     Dates: start: 2010

REACTIONS (2)
  - Status epilepticus [Unknown]
  - Drug ineffective [Recovered/Resolved]
